FAERS Safety Report 4838014-X (Version None)
Quarter: 2005Q4

REPORT INFORMATION
  Report Type: 
  Country: None (occurrence: None)
  Receive Date: 20051123
  Receipt Date: 20051123
  Transmission Date: 20060501
  Serious: Yes (Death, Life-Threatening, Hospitalization)
  Sender: FDA-Public Use
  Company Number: None

PATIENT
  Age: 88 Year
  Sex: Female
  Weight: 49.8957 kg

DRUGS (3)
  1. CELEBREX [Suspect]
     Indication: ARTHRITIS
     Dosage: 1 TAB BY MOUTH DAILY
     Route: 048
     Dates: start: 19970101, end: 20050410
  2. DURAGESIC-50 [Suspect]
     Indication: BACK PAIN
     Dosage: 50 UGH FENTANYL - 72 HOURS
     Dates: start: 20051201, end: 20050410
  3. DURAGESIC-50 [Suspect]
     Indication: OSTEOPOROSIS
     Dosage: 50 UGH FENTANYL - 72 HOURS
     Dates: start: 20051201, end: 20050410

REACTIONS (2)
  - DYSPNOEA [None]
  - PULMONARY EMBOLISM [None]
